FAERS Safety Report 6547987-9 (Version None)
Quarter: 2010Q1

REPORT INFORMATION
  Report Type: 
  Country: None (occurrence: None)
  Receive Date: 20100124
  Receipt Date: 20091211
  Transmission Date: 20100710
  Serious: Yes (Hospitalization)
  Sender: FDA-Public Use
  Company Number: JP-ALEXION-A200900931

PATIENT
  Sex: Male

DRUGS (37)
  1. ECULIZUMAB [Suspect]
     Indication: PAROXYSMAL NOCTURNAL HAEMOGLOBINURIA
     Dosage: 600 MG, QW
     Route: 042
     Dates: start: 20071226, end: 20080116
  2. ECULIZUMAB [Suspect]
     Dosage: 900 MG, Q2W
     Route: 042
     Dates: start: 20080122
  3. PREDNISOLONE [Concomitant]
     Indication: PAROXYSMAL NOCTURNAL HAEMOGLOBINURIA
     Dosage: 5 MG, BID
     Dates: start: 20070101
  4. PREDNISOLONE [Concomitant]
     Dosage: 10 MG, QD
     Dates: start: 20080123, end: 20080227
  5. PREDNISOLONE [Concomitant]
     Dosage: 5 MG, X2/ALTERNATE-DAY
     Dates: start: 20080227
  6. PREDNISOLONE [Concomitant]
     Dosage: 10 MG/ALTERNATE-DAY
     Dates: start: 20080305, end: 20080315
  7. PREDNISOLONE [Concomitant]
     Dosage: 60 MG, UNK
     Route: 041
     Dates: start: 20080316, end: 20080318
  8. PREDNISOLONE [Concomitant]
     Dosage: 40 MG, UNK
     Route: 041
     Dates: start: 20080319, end: 20080321
  9. PREDNISOLONE [Concomitant]
     Dosage: 20 MG, UNK
     Route: 048
     Dates: start: 20080322, end: 20080324
  10. PREDNISOLONE [Concomitant]
     Dosage: 10 MG, QD
     Route: 048
     Dates: start: 20080325
  11. PREDNISOLONE [Concomitant]
     Dosage: 10 MG/ALTERNATE-DAY
     Dates: start: 20080402, end: 20080408
  12. PREDNISOLONE [Concomitant]
     Dosage: 5 MG, QD
     Dates: start: 20080612
  13. PREDNISOLONE [Concomitant]
     Dosage: 30 MG, QD
     Dates: start: 20080614, end: 20080618
  14. PREDNISOLONE [Concomitant]
     Dosage: 20 MG, QD
     Dates: start: 20080619, end: 20080625
  15. PREDNISOLONE [Concomitant]
     Dosage: 10 MG, QD
     Route: 048
     Dates: start: 20080724, end: 20080806
  16. PREDNISOLONE [Concomitant]
     Dosage: 20 MG, QD
     Dates: start: 20080814, end: 20080820
  17. PREDNISOLONE [Concomitant]
     Dosage: 10 MG, QD
     Dates: start: 20081203, end: 20090104
  18. PREDNISOLONE [Concomitant]
     Dosage: 10 MG/ALTERNATE DAY
     Dates: start: 20090211, end: 20090216
  19. PREDNISOLONE [Concomitant]
     Dosage: 10 MG, QD
     Dates: start: 20090408, end: 20090511
  20. PREDNISOLONE [Concomitant]
     Dosage: 30 MG, QD
     Route: 042
     Dates: start: 20090511, end: 20090515
  21. PREDNISOLONE [Concomitant]
     Dosage: 20 MG, QD
     Route: 042
     Dates: start: 20090516, end: 20090518
  22. PREDNISOLONE [Concomitant]
     Dosage: 10 MG, QD
     Route: 048
     Dates: start: 20090519
  23. PREDNISOLONE [Concomitant]
     Dosage: 10 MG, X 1/2 DAY
     Dates: start: 20091007, end: 20091013
  24. PREDNISOLONE [Concomitant]
     Dosage: 5 MG, QD
     Dates: start: 20091104, end: 20091107
  25. PRIMOBOLAN                         /00044802/ [Concomitant]
     Indication: PAROXYSMAL NOCTURNAL HAEMOGLOBINURIA
     Dosage: 10 MG, BID
     Dates: start: 19911201
  26. PRIMOBOLAN                         /00044802/ [Concomitant]
     Dosage: 10 MG, BID
     Dates: start: 20051102
  27. BAKTAR [Concomitant]
     Indication: INFECTION PROPHYLAXIS
     Dosage: 1 DF/DAY
     Dates: start: 20070901
  28. BAKTAR [Concomitant]
     Dosage: 1 DF/ALTERNATE DAY
     Dates: start: 20080305
  29. BAKTAR [Concomitant]
     Dosage: 1 G/ALTERNATE DAY
     Dates: start: 20030601
  30. ASPIRIN [Concomitant]
     Indication: THROMBOSIS PROPHYLAXIS
     Dosage: 100 MG, QD
     Dates: start: 19911201
  31. ASPIRIN [Concomitant]
     Dosage: 100 MG, QD
     Dates: start: 20050412
  32. ALFAROL [Concomitant]
     Indication: MYELODYSPLASTIC SYNDROME
     Dosage: 0.25 UG, TID
     Dates: start: 19911201
  33. ALFAROL [Concomitant]
     Dosage: 0.25 UG, TID
     Dates: start: 20010612
  34. FOIPAN [Concomitant]
     Indication: REFLUX OESOPHAGITIS
     Dosage: 100 MG, QD
     Dates: start: 20040101
  35. TAKEPRON [Concomitant]
     Indication: REFLUX OESOPHAGITIS
     Dosage: 15 MG, QD
     Dates: start: 20040101
  36. CALONAL [Concomitant]
     Indication: PYREXIA
     Dosage: 400 MG, PRN
     Dates: start: 20030501, end: 20080520
  37. ITRIZOLE [Concomitant]
     Indication: INFECTION PROPHYLAXIS
     Dosage: 150 MG, QD
     Dates: start: 20081114

REACTIONS (1)
  - PYREXIA [None]
